FAERS Safety Report 17419612 (Version 1)
Quarter: 2020Q1

REPORT INFORMATION
  Report Type: Not Available
  Country: NL (occurrence: FI)
  Receive Date: 20200214
  Receipt Date: 20200214
  Transmission Date: 20200409
  Serious: Yes (Other)
  Sender: FDA-Public Use
  Company Number: FI-FRESENIUS KABI-FK202001369

PATIENT
  Age: 50 Year
  Sex: Female

DRUGS (3)
  1. PACLITAXEL (MANUFACTURER UNKNOWN) [Suspect]
     Active Substance: PACLITAXEL
     Indication: OVARIAN CANCER
     Route: 065
  2. CARBOPLATIN. [Suspect]
     Active Substance: CARBOPLATIN
     Indication: OVARIAN CANCER
     Route: 065
  3. BEVACIZUMAB. [Suspect]
     Active Substance: BEVACIZUMAB
     Indication: OVARIAN CANCER
     Route: 042
     Dates: start: 20181220

REACTIONS (1)
  - Rheumatic disorder [Recovering/Resolving]
